FAERS Safety Report 6645064-X (Version None)
Quarter: 2010Q1

REPORT INFORMATION
  Report Type: 
  Country: None (occurrence: None)
  Receive Date: 20100322
  Receipt Date: 20100309
  Transmission Date: 20100710
  Serious: Yes (Hospitalization, Other)
  Sender: FDA-Public Use
  Company Number: US-TYCO HEALTHCARE/MALLINCKRODT-T200901454

PATIENT
  Sex: Male
  Weight: 77.098 kg

DRUGS (23)
  1. OPTIMARK [Suspect]
     Indication: ANGIOGRAM
     Dosage: UNK
     Dates: start: 20050912, end: 20050912
  2. OMNISCAN [Suspect]
     Indication: NUCLEAR MAGNETIC RESONANCE IMAGING
     Dosage: UNK
     Dates: start: 19980317, end: 19980317
  3. OMNISCAN [Suspect]
     Indication: ANGIOGRAM
     Dosage: UNK
     Dates: start: 20050425, end: 20050425
  4. OMNISCAN [Suspect]
     Indication: NUCLEAR MAGNETIC RESONANCE IMAGING BRAIN
  5. TYLENOL (CAPLET) [Concomitant]
     Dosage: 1000 MG, EVERY 6 HRS PRN
  6. ZOFRAN [Concomitant]
     Dosage: EVERY 6 HRS PRN
     Route: 042
  7. DARVOCET A500 [Concomitant]
     Dosage: 1 TABLET EVERY 4 HRS PRN
  8. TUMS                               /00108001/ [Concomitant]
     Dosage: 500 MG, 1 TABLET 30 MINUTES BEFORE MEALS
     Route: 048
  9. NORVASC [Concomitant]
     Dosage: 5 MG, QD
  10. NEPHROCAPS [Concomitant]
     Dosage: ONE CAPSULE DAILY
  11. NEURONTIN [Concomitant]
     Dosage: 300 MG, 1 TABLET
  12. ROCALTROL [Concomitant]
     Dosage: 0.25 UG, QD
  13. FLOMAX [Concomitant]
     Dosage: 0.4 MG, AT BEDTIME
  14. LEVOXYL [Concomitant]
     Dosage: 75 UG, 30 MINUTES BEFORE BREAKFAST
  15. COZAAR [Concomitant]
     Dosage: 100 MG, QD
  16. ZYLOPRIM [Concomitant]
     Dosage: 100 MG, QD
  17. NOVOLOG [Concomitant]
     Dosage: SLIDING SCALE
  18. PREVACID [Concomitant]
     Dosage: 30 MG, BID
  19. CARDIZEM [Concomitant]
     Dosage: 120 MG, QD
  20. HEPARIN [Concomitant]
     Dosage: 1500 U (BOLUS) DURING DIALYSIS
     Route: 042
  21. HEPARIN [Concomitant]
     Dosage: 1500 U (MAINTENANCE) DURING DIALYSIS
     Route: 042
  22. EPOGEN [Concomitant]
     Dosage: 9900 IU, DIALYSIS DAYS
  23. ZEMPLAR [Concomitant]
     Dosage: 3 UG, ON DIALYSIS DAYS

REACTIONS (32)
  - ABASIA [None]
  - ABDOMINAL DISCOMFORT [None]
  - ARTERIOSCLEROSIS CORONARY ARTERY [None]
  - ARTHROPATHY [None]
  - ATELECTASIS [None]
  - BENIGN PROSTATIC HYPERPLASIA [None]
  - CALCULUS URETERIC [None]
  - CHEST PAIN [None]
  - CHOLELITHIASIS [None]
  - CONJUNCTIVITIS [None]
  - DEVICE RELATED INFECTION [None]
  - DIVERTICULUM INTESTINAL [None]
  - DRUG TOXICITY [None]
  - EXOSTOSIS [None]
  - FAILURE TO THRIVE [None]
  - FLUID OVERLOAD [None]
  - GALLBLADDER DISORDER [None]
  - MUSCULAR WEAKNESS [None]
  - NAUSEA [None]
  - NEPHROGENIC SYSTEMIC FIBROSIS [None]
  - NEUROPATHY PERIPHERAL [None]
  - OFF LABEL USE [None]
  - OSTEOARTHRITIS [None]
  - PLEURAL EFFUSION [None]
  - PNEUMONIA [None]
  - PROSTATITIS [None]
  - PULMONARY VASCULAR DISORDER [None]
  - RENAL ATROPHY [None]
  - THROMBOSIS [None]
  - URINARY TRACT INFECTION [None]
  - VASCULAR CALCIFICATION [None]
  - VOMITING [None]
